FAERS Safety Report 8037704-8 (Version None)
Quarter: 2012Q1

REPORT INFORMATION
  Report Type: 
  Country: None (occurrence: None)
  Receive Date: 20120111
  Receipt Date: 20111228
  Transmission Date: 20120608
  Serious: Yes (Death)
  Sender: FDA-Public Use
  Company Number: US-UCBSA-048951

PATIENT
  Age: 32 Year
  Sex: Male

DRUGS (6)
  1. FENTANYL [Suspect]
     Route: 048
  2. ACETAMINOPHEN AND OXYCODONE HCL [Suspect]
     Route: 048
  3. CLONAZEPAM [Suspect]
     Route: 048
  4. MARIJUANA [Suspect]
     Route: 048
  5. ALPRAZOLAM [Suspect]
     Route: 048
  6. CARISOPRODOL [Suspect]
     Route: 048

REACTIONS (3)
  - RESPIRATORY ARREST [None]
  - TOXICITY TO VARIOUS AGENTS [None]
  - CARDIAC ARREST [None]
